FAERS Safety Report 4658602-3 (Version None)
Quarter: 2005Q2

REPORT INFORMATION
  Report Type: 
  Country: None (occurrence: None)
  Receive Date: 20050510
  Receipt Date: 20040211
  Transmission Date: 20051028
  Serious: Yes (Death)
  Sender: FDA-Public Use
  Company Number: 2004S1000488

PATIENT
  Age: 42 Year
  Sex: Female
  Weight: 148.3262 kg

DRUGS (13)
  1. CLOZAPINE [Suspect]
     Indication: SCHIZOAFFECTIVE DISORDER
     Dosage: SEE IMAGE
     Route: 048
  2. VENLAFAXINE ER [Concomitant]
  3. RISPERIDONE [Concomitant]
  4. CITALOPRAM [Concomitant]
  5. FUROSEMIDE [Concomitant]
  6. WARFARIN [Concomitant]
  7. OMEPRAZOLE [Concomitant]
  8. OLANZAPINE [Concomitant]
  9. POTASSIUM CHLORIDE [Concomitant]
  10. TOPIRAMATE [Concomitant]
  11. LAMOTRIGINE [Concomitant]
  12. OXYBUTYNIN HYDROCHLORIDE XL [Concomitant]
  13. TRIAMCINOLONE INHALER [Concomitant]

REACTIONS (2)
  - ARRHYTHMIA [None]
  - WEIGHT INCREASED [None]
